FAERS Safety Report 9975803 (Version 1)
Quarter: 2014Q1

REPORT INFORMATION
  Report Type: Report from Study
  Country: US (occurrence: US)
  Receive Date: 20140306
  Receipt Date: 20140306
  Transmission Date: 20141002
  Serious: Yes (Other)
  Sender: FDA-Public Use
  Company Number: US-GILEAD-2014-0096053

PATIENT
  Age: 77 Year
  Sex: Male

DRUGS (3)
  1. RANOLAZINE [Suspect]
     Indication: PRODUCT USED FOR UNKNOWN INDICATION
     Dosage: 500 MG, BID
     Route: 065
  2. ASPIRIN [Concomitant]
  3. PLAVIX [Concomitant]

REACTIONS (5)
  - Stent placement [Unknown]
  - Heart rate irregular [Unknown]
  - Feeling abnormal [Unknown]
  - Paraesthesia [Unknown]
  - Dizziness [Unknown]
